FAERS Safety Report 5782303-1 (Version None)
Quarter: 2008Q2

REPORT INFORMATION
  Report Type: 
  Country: None (occurrence: None)
  Receive Date: 20080623
  Receipt Date: 20080527
  Transmission Date: 20081010
  Serious: No
  Sender: FDA-Public Use
  Company Number: US-BOEHRINGER INGELHEIM GMBH, GERMANY-2008-BP-08307BP

PATIENT
  Age: 51 Year
  Sex: Male

DRUGS (1)
  1. MICARDIS [Suspect]
     Indication: HYPERTENSION

REACTIONS (8)
  - AGGRESSION [None]
  - COUGH [None]
  - DRUG INEFFECTIVE [None]
  - DRY THROAT [None]
  - DYSPNOEA [None]
  - LIBIDO DECREASED [None]
  - MOOD SWINGS [None]
  - PHARYNGOLARYNGEAL PAIN [None]
